FAERS Safety Report 6551011-1 (Version None)
Quarter: 2010Q1

REPORT INFORMATION
  Report Type: 
  Country: None (occurrence: None)
  Receive Date: 20100125
  Receipt Date: 20100114
  Transmission Date: 20100710
  Serious: Yes (Death, Hospitalization, Disabling)
  Sender: FDA-Public Use
  Company Number: GB-AMGEN-US387694

PATIENT
  Sex: Female
  Weight: 16 kg

DRUGS (3)
  1. ENBREL [Suspect]
     Indication: JUVENILE ARTHRITIS
     Route: 058
     Dates: start: 20070131
  2. CALCIUM [Concomitant]
     Dosage: UNKNOWN
  3. ACICLOVIR [Concomitant]
     Route: 048
     Dates: start: 20080801

REACTIONS (3)
  - CARDIOVASCULAR DISORDER [None]
  - H1N1 INFLUENZA [None]
  - HISTIOCYTOSIS HAEMATOPHAGIC [None]
